FAERS Safety Report 6161517-5 (Version None)
Quarter: 2009Q2

REPORT INFORMATION
  Report Type: 
  Country: None (occurrence: None)
  Receive Date: 20090421
  Receipt Date: 20090410
  Transmission Date: 20091009
  Serious: Yes (Hospitalization)
  Sender: FDA-Public Use
  Company Number: FR-ELI_LILLY_AND_COMPANY-FR200904003093

PATIENT
  Age: 86 Year
  Sex: Female

DRUGS (1)
  1. FORTEO [Suspect]
     Indication: OSTEOPOROSIS
     Dosage: 20 UG, DAILY (1/D)
     Dates: start: 20080625, end: 20090406

REACTIONS (5)
  - FALL [None]
  - FOOT FRACTURE [None]
  - HAND FRACTURE [None]
  - RADIUS FRACTURE [None]
  - ULNA FRACTURE [None]
